FAERS Safety Report 12646641 (Version 1)
Quarter: 2016Q3

REPORT INFORMATION
  Report Type: Spontaneous
  Country: US (occurrence: US)
  Receive Date: 20160812
  Receipt Date: 20160812
  Transmission Date: 20161109
  Serious: No
  Sender: FDA-Public Use
  Company Number: US-BEH-2016072154

PATIENT
  Sex: Female
  Weight: 81.63 kg

DRUGS (22)
  1. BOTOX [Concomitant]
     Active Substance: ONABOTULINUMTOXINA
  2. DEPLIN [Concomitant]
     Active Substance: LEVOMEFOLATE CALCIUM
  3. DIAZEPAM. [Concomitant]
     Active Substance: DIAZEPAM
  4. EPIPEN [Concomitant]
     Active Substance: EPINEPHRINE
  5. LIPITOR [Concomitant]
     Active Substance: ATORVASTATIN CALCIUM
  6. TESTOSTERONE. [Concomitant]
     Active Substance: TESTOSTERONE
  7. ACETAMINOPHEN. [Concomitant]
     Active Substance: ACETAMINOPHEN
  8. DIPHENHYDRAMINE. [Concomitant]
     Active Substance: DIPHENHYDRAMINE
  9. ATENOLOL AND CHLORTHALIDONE [Concomitant]
     Active Substance: ATENOLOL\CHLORTHALIDONE
  10. CYCLOBENZAPRINE [Concomitant]
     Active Substance: CYCLOBENZAPRINE
  11. PRILOSEC [Concomitant]
     Active Substance: OMEPRAZOLE MAGNESIUM
  12. VIVELLE [Concomitant]
     Active Substance: ESTRADIOL
  13. ARMOUR THYROID [Concomitant]
     Active Substance: THYROID, PORCINE
  14. HIZENTRA [Suspect]
     Active Substance: HUMAN IMMUNOGLOBULIN G
     Indication: MIGRAINE
     Dosage: 6 G, QW
     Route: 058
     Dates: start: 20151026
  15. WELLBUTRIN [Concomitant]
     Active Substance: BUPROPION HYDROCHLORIDE
  16. PROAIR HFA [Concomitant]
     Active Substance: ALBUTEROL SULFATE
  17. PROVIGIL [Concomitant]
     Active Substance: MODAFINIL
  18. PERCOCET                           /00446701/ [Concomitant]
     Active Substance: ACETAMINOPHEN\OXYCODONE HYDROCHLORIDE\OXYCODONE TEREPHTHALATE
  19. LIDOCAINE/PRILOCAINE [Concomitant]
     Active Substance: LIDOCAINE\PRILOCAINE
  20. PROMETRIUM [Concomitant]
     Active Substance: PROGESTERONE
  21. MORPHINE [Concomitant]
     Active Substance: MORPHINE
  22. PROGESTERONE. [Concomitant]
     Active Substance: PROGESTERONE

REACTIONS (1)
  - Sinusitis [Unknown]
